FAERS Safety Report 13131286 (Version 5)
Quarter: 2017Q2

REPORT INFORMATION
  Report Type: Spontaneous
  Country: US (occurrence: US)
  Receive Date: 20170119
  Receipt Date: 20170420
  Transmission Date: 20170830
  Serious: Yes (Hospitalization, Other)
  Sender: FDA-Public Use
  Company Number: US-MALLINCKRODT-T201700103

PATIENT
  Age: 57 Year
  Sex: Male
  Weight: 88 kg

DRUGS (13)
  1. GABLOFEN [Suspect]
     Active Substance: BACLOFEN
     Dosage: 700 ?G, QD
  2. DILAUDID [Concomitant]
     Active Substance: HYDROMORPHONE HYDROCHLORIDE
  3. SUMATRIPTAN. [Concomitant]
     Active Substance: SUMATRIPTAN
     Indication: MIGRAINE
     Dosage: 25 MG ONCE, REPEATE IN 2H IF NEEDED
  4. CLONAZEPAM. [Concomitant]
     Active Substance: CLONAZEPAM
  5. TIZANIDINE. [Concomitant]
     Active Substance: TIZANIDINE
  6. BACLOFEN. [Concomitant]
     Active Substance: BACLOFEN
     Dosage: 10 MG, TID
     Route: 048
  7. CETIRIZINE [Concomitant]
     Active Substance: CETIRIZINE HYDROCHLORIDE
     Dosage: 10 MG, QD
  8. GABLOFEN [Suspect]
     Active Substance: BACLOFEN
     Indication: MUSCLE SPASTICITY
     Dosage: 549.7 ?G, QD
     Route: 037
  9. GABLOFEN [Suspect]
     Active Substance: BACLOFEN
     Dosage: 500 ?G, QD
     Route: 037
  10. GABLOFEN [Suspect]
     Active Substance: BACLOFEN
     Dosage: 344.4 ?G, QD
     Route: 037
  11. NORTRIPTYLINE [Concomitant]
     Active Substance: NORTRIPTYLINE
     Dosage: 50 MG, QD, NIGHTLY
  12. FLUTICASONE. [Concomitant]
     Active Substance: FLUTICASONE
     Dosage: 50 ?G, BID PRN
     Route: 045
  13. DEMADEX [Concomitant]
     Active Substance: TORSEMIDE
     Dosage: 10 MG, QD

REACTIONS (6)
  - Device issue [Recovering/Resolving]
  - Seizure [Not Recovered/Not Resolved]
  - Intervertebral disc degeneration [Unknown]
  - Arthropathy [Unknown]
  - Muscle spasms [Recovering/Resolving]
  - Hyperlipidaemia [Not Recovered/Not Resolved]

NARRATIVE: CASE EVENT DATE: 201611
